FAERS Safety Report 5542929-7 (Version None)
Quarter: 2007Q4

REPORT INFORMATION
  Report Type: 
  Country: None (occurrence: None)
  Receive Date: 20071210
  Receipt Date: 20071130
  Transmission Date: 20080405
  Serious: Yes (Hospitalization, Other)
  Sender: FDA-Public Use
  Company Number: BR-ABBOTT-07P-020-0426922-00

PATIENT
  Sex: Female
  Weight: 87 kg

DRUGS (7)
  1. HUMIRA [Suspect]
     Indication: RHEUMATOID ARTHRITIS
     Route: 058
     Dates: start: 20050624
  2. METHOTREXATE [Concomitant]
     Indication: RHEUMATOID ARTHRITIS
  3. ATENOLOL AND HYDROCHLOROTHIAZIDE [Concomitant]
     Indication: HYPERTENSION
  4. COLLYRIUM [Concomitant]
     Indication: OCULAR HYPERTENSION
  5. POLYVINYL ALCOHOL AND POVIDONE [Concomitant]
     Indication: OCULAR HYPERTENSION
  6. LEVOBUNOLOL HCL [Concomitant]
     Indication: OCULAR HYPERTENSION
  7. UNKNOWN SYRUP [Concomitant]
     Indication: COUGH
     Dosage: AS REQUIRED

REACTIONS (2)
  - BLOOD TRIGLYCERIDES INCREASED [None]
  - THYROID NEOPLASM [None]
